FAERS Safety Report 15984756 (Version 1)
Quarter: 2019Q1

REPORT INFORMATION
  Report Type: Report from Study
  Country: US (occurrence: US)
  Receive Date: 20190220
  Receipt Date: 20190220
  Transmission Date: 20190418
  Serious: Yes (Hospitalization, Other)
  Sender: FDA-Public Use
  Company Number: US-ROCHE-2233737

PATIENT
  Age: 74 Year
  Sex: Male
  Weight: 75.4 kg

DRUGS (3)
  1. PIRFENIDONE. [Suspect]
     Active Substance: PIRFENIDONE
     Indication: NON-SMALL CELL LUNG CANCER
     Dosage: PIRFENIDONE WAS RECEIVED AT 267 MG CAPSULES BY MOUTH (PO) 3 TIMES PER DAY (TID). DOSE ESCALATION AT
     Route: 048
     Dates: start: 20180912
  2. CARBOPLATIN. [Suspect]
     Active Substance: CARBOPLATIN
     Indication: NON-SMALL CELL LUNG CANCER
     Dosage: AREA UNDER THE CURVE (AUC) 6 ON DAY 1 OF A 21-DAY CYCLE FOR 4 - 6 CYCLES (DOSE PER PROTOCOL)?LAST DO
     Route: 065
     Dates: start: 20180912
  3. PEMETREXED. [Suspect]
     Active Substance: PEMETREXED
     Indication: NON-SMALL CELL LUNG CANCER
     Dosage: 500 MG/M^2 ON DAY 1 OF A 21-DAY CYCLE FOR 4 - 6 CYCLES (DOSE PER PROTOCOL)?LAST DOSE OF PEMETREXED W
     Route: 065
     Dates: start: 20180912

REACTIONS (3)
  - Hypotension [Unknown]
  - Hypotension [Recovered/Resolved]
  - Asthenia [Unknown]

NARRATIVE: CASE EVENT DATE: 20181214
